FAERS Safety Report 16574712 (Version 1)
Quarter: 2019Q3

REPORT INFORMATION
  Report Type: Spontaneous
  Country: US (occurrence: US)
  Receive Date: 20190715
  Receipt Date: 20190715
  Transmission Date: 20191004
  Serious: No
  Sender: FDA-Public Use
  Company Number: US-NOVOPROD-643904

PATIENT
  Age: 50 Year
  Sex: Male

DRUGS (3)
  1. OZEMPIC [Suspect]
     Active Substance: SEMAGLUTIDE
     Indication: TYPE 2 DIABETES MELLITUS
     Dosage: 0.5 MG, QW
     Route: 058
     Dates: start: 20181209, end: 201812
  2. OZEMPIC [Suspect]
     Active Substance: SEMAGLUTIDE
     Dosage: 1 MG PER DOSE, 2 MG PER 1.5 ML, INJECT 0.75 ML ONCE A WEEK
     Route: 058
     Dates: start: 201812, end: 20181231
  3. METFORMIN [Concomitant]
     Active Substance: METFORMIN HYDROCHLORIDE
     Indication: TYPE 2 DIABETES MELLITUS
     Dosage: 500 MG, TID
     Route: 048

REACTIONS (6)
  - Taste disorder [Recovered/Resolved]
  - Diarrhoea [Recovered/Resolved]
  - Product label confusion [Recovered/Resolved]
  - Decreased appetite [Recovered/Resolved]
  - Nausea [Recovered/Resolved]
  - Vomiting [Recovered/Resolved]

NARRATIVE: CASE EVENT DATE: 20181209
